FAERS Safety Report 6502564-0 (Version None)
Quarter: 2009Q4

REPORT INFORMATION
  Report Type: 
  Country: None (occurrence: None)
  Receive Date: 20091217
  Receipt Date: 20091209
  Transmission Date: 20100525
  Serious: Yes (Hospitalization)
  Sender: FDA-Public Use
  Company Number: AU-ASTRAZENECA-2009SE31125

PATIENT
  Age: 77 Year
  Sex: Male

DRUGS (6)
  1. ROSUVASTATIN [Suspect]
     Route: 048
  2. SIMVASTATIN [Suspect]
     Route: 048
  3. ASPIRIN [Concomitant]
  4. COLOXYL WITH SENNA [Concomitant]
  5. GEMFIBROZIL [Concomitant]
  6. PARACETAMOL [Concomitant]

REACTIONS (9)
  - ABDOMINAL PAIN [None]
  - CHROMATURIA [None]
  - CONSTIPATION [None]
  - DECREASED APPETITE [None]
  - DYSURIA [None]
  - LIVER FUNCTION TEST ABNORMAL [None]
  - PRURITUS GENERALISED [None]
  - RHABDOMYOLYSIS [None]
  - VOMITING [None]
